FAERS Safety Report 9598057 (Version 1)
Quarter: 2013Q4

REPORT INFORMATION
  Report Type: Spontaneous
  Country: US (occurrence: US)
  Receive Date: 20131004
  Receipt Date: 20131004
  Transmission Date: 20140711
  Serious: No
  Sender: FDA-Public Use
  Company Number: US-AMGEN-USASP2013022148

PATIENT
  Age: 15 Year
  Sex: Male
  Weight: 70.3 kg

DRUGS (6)
  1. ENBREL [Suspect]
     Indication: PRODUCT USED FOR UNKNOWN INDICATION
     Dosage: 50 MG, QWK
     Route: 058
  2. LANSOPRAZOLE [Concomitant]
     Dosage: 15 MG, ODT
  3. FOLIC ACID [Concomitant]
     Dosage: 20 MG, UNK
  4. METHOTREXATE [Concomitant]
     Dosage: 2.5 MG, UNK
  5. NAPROXEN [Concomitant]
     Dosage: 250 MG, UNK
  6. MULTIVITAMINS, PLAIN [Concomitant]
     Dosage: UNK

REACTIONS (1)
  - Drug ineffective [Unknown]
